FAERS Safety Report 4357392-1 (Version None)
Quarter: 2004Q2

REPORT INFORMATION
  Report Type: 
  Country: None (occurrence: None)
  Receive Date: 20040506
  Receipt Date: 20040414
  Transmission Date: 20050107
  Serious: Yes (Death, Hospitalization)
  Sender: FDA-Public Use
  Company Number: 6008430

PATIENT
  Sex: Female

DRUGS (5)
  1. BISOPROLOL (CHF) (TABLETS) (BISOPROLOL) [Suspect]
     Indication: CARDIAC FAILURE CONGESTIVE
     Dosage: 2.5 MG (2.5 MG, 1 IN 1 D)
     Dates: start: 20040316, end: 20040408
  2. ASPIRIN [Suspect]
     Indication: DRUG USE FOR UNKNOWN INDICATION
     Dosage: 250 MG
     Route: 048
     Dates: start: 20040305
  3. FUROSEMIDE [Concomitant]
  4. KCL (POTASSIUM CHLORIDE) [Concomitant]
  5. FUMARATE FERROUS (FERROUS FUMARATE) [Concomitant]

REACTIONS (4)
  - CARDIAC FAILURE [None]
  - CARDIOMEGALY [None]
  - PULMONARY OEDEMA [None]
  - PULMONARY VASCULAR DISORDER [None]
